FAERS Safety Report 18985053 (Version 1)
Quarter: 2021Q1

REPORT INFORMATION
  Report Type: Spontaneous
  Country: US (occurrence: US)
  Receive Date: 20210309
  Receipt Date: 20210309
  Transmission Date: 20210420
  Serious: Yes (Death, Life-Threatening, Other)
  Sender: FDA-Public Use
  Company Number: US-DRREDDYS-USA/USA/21/0132693

PATIENT
  Age: 44 Year
  Sex: Male

DRUGS (4)
  1. FLUCONAZOLE. [Suspect]
     Active Substance: FLUCONAZOLE
  2. DEXAMETHASONE SODIUM PHOSPHATE INJECTION, 4 MG/ML [Concomitant]
     Active Substance: DEXAMETHASONE SODIUM PHOSPHATE
     Indication: CENTRAL NERVOUS SYSTEM VASCULITIS
  3. DEXAMETHASONE SODIUM PHOSPHATE INJECTION, 4 MG/ML [Concomitant]
     Active Substance: DEXAMETHASONE SODIUM PHOSPHATE
     Indication: DISSEMINATED COCCIDIOIDOMYCOSIS
  4. FLUCONAZOLE. [Suspect]
     Active Substance: FLUCONAZOLE
     Indication: DISSEMINATED COCCIDIOIDOMYCOSIS

REACTIONS (2)
  - Drug ineffective [Fatal]
  - Thrombocytopenia [Recovering/Resolving]
